FAERS Safety Report 8469857-1 (Version None)
Quarter: 2012Q2

REPORT INFORMATION
  Report Type: 
  Country: None (occurrence: None)
  Receive Date: 20120627
  Receipt Date: 20120615
  Transmission Date: 20120825
  Serious: Yes (Hospitalization, Other)
  Sender: FDA-Public Use
  Company Number: CO-AMGEN-COLSP2011057529

PATIENT
  Age: 81 Year
  Sex: Female

DRUGS (4)
  1. NAPROXEN [Concomitant]
     Indication: PAIN
     Dosage: 250 MG, 1X/DAY
     Route: 048
     Dates: start: 20070101
  2. PREDNISOLONE [Concomitant]
     Indication: RHEUMATOID ARTHRITIS
     Dosage: 10 MG, 1X/DAY
     Route: 048
     Dates: start: 20070101
  3. ENBREL [Suspect]
     Indication: RHEUMATOID ARTHRITIS
     Dosage: 50 MG, WEEKLY
     Route: 058
     Dates: start: 20110107
  4. ENBREL [Suspect]
     Dosage: 50 MG, QWK
     Route: 058

REACTIONS (6)
  - GALLBLADDER DISORDER [None]
  - NASOPHARYNGITIS [None]
  - URINARY TRACT INFECTION [None]
  - INFLUENZA [None]
  - DRUG INEFFECTIVE [None]
  - OROPHARYNGEAL PAIN [None]
